FAERS Safety Report 8018858-6 (Version None)
Quarter: 2012Q1

REPORT INFORMATION
  Report Type: 
  Country: None (occurrence: None)
  Receive Date: 20120103
  Receipt Date: 20111226
  Transmission Date: 20120608
  Serious: Yes (Other)
  Sender: FDA-Public Use
  Company Number: JP-BAYER-2011-113377

PATIENT
  Age: 60 Year
  Sex: Male

DRUGS (2)
  1. PLAVIX [Suspect]
     Dosage: UNK
     Route: 048
     Dates: start: 20110101, end: 20110201
  2. ASPIRIN [Suspect]
     Dosage: UNK
     Route: 048
     Dates: start: 20110101, end: 20110201

REACTIONS (1)
  - AGRANULOCYTOSIS [None]
